FAERS Safety Report 6805961-9 (Version None)
Quarter: 2010Q2

REPORT INFORMATION
  Report Type: 
  Country: None (occurrence: None)
  Receive Date: 20100629
  Receipt Date: 20080509
  Transmission Date: 20101027
  Serious: No
  Sender: FDA-Public Use
  Company Number: US-PFIZER INC-2007102552

PATIENT
  Sex: Male

DRUGS (4)
  1. ALPRAZOLAM [Suspect]
     Indication: PROPHYLAXIS
     Route: 048
     Dates: end: 20071101
  2. ALPRAZOLAM [Suspect]
     Indication: ANXIETY
  3. ALPRAZOLAM [Suspect]
     Indication: ARTERIAL SPASM
  4. DRUG, UNSPECIFIED [Concomitant]
     Indication: IRRITABLE BOWEL SYNDROME

REACTIONS (8)
  - ASTHENIA [None]
  - DECREASED APPETITE [None]
  - ERYTHEMA [None]
  - INFLUENZA [None]
  - MALAISE [None]
  - NAUSEA [None]
  - POISONING [None]
  - PYREXIA [None]
